FAERS Safety Report 8854094 (Version 2)
Quarter: 2012Q4

REPORT INFORMATION
  Report Type: 
  Country: US (occurrence: None)
  Receive Date: 20121023
  Receipt Date: 20121109
  Transmission Date: 20130627
  Serious: Yes (Death)
  Sender: FDA-Public Use
  Company Number: None

PATIENT
  Sex: Male
  Weight: 126.1 kg

DRUGS (1)
  1. BACITRACIN ZINC AND POLYMYXIN B SULFATE [Suspect]

REACTIONS (7)
  - Urticaria [None]
  - Renal failure acute [None]
  - Acute hepatic failure [None]
  - Incision site pain [None]
  - Incision site complication [None]
  - Wound secretion [None]
  - Product quality issue [None]
